FAERS Safety Report 6437288-1 (Version None)
Quarter: 2009Q4

REPORT INFORMATION
  Report Type: 
  Country: None (occurrence: None)
  Receive Date: 20091112
  Receipt Date: 20091105
  Transmission Date: 20100525
  Serious: Yes (Death)
  Sender: FDA-Public Use
  Company Number: DE-ROCHE-667103

PATIENT
  Sex: Male

DRUGS (9)
  1. MYCOPHENOLATE MOFETIL [Suspect]
     Route: 048
     Dates: start: 20090411
  2. TACROLIMUS [Suspect]
     Route: 048
     Dates: start: 20090411
  3. PREDNISONE [Suspect]
     Route: 048
     Dates: start: 20090411
  4. METOPROLOL [Concomitant]
  5. DIGITOXIN INJ [Concomitant]
  6. TORSEMIDE [Concomitant]
  7. FLUVASTATIN [Concomitant]
  8. PANTOPRAZOL [Concomitant]
  9. COUMADIN [Concomitant]
     Dosage: TDD:  RELATED TO INR.

REACTIONS (1)
  - SUDDEN DEATH [None]
